FAERS Safety Report 4884034-9 (Version None)
Quarter: 2006Q1

REPORT INFORMATION
  Report Type: 
  Country: None (occurrence: None)
  Receive Date: 20060117
  Receipt Date: 20060110
  Transmission Date: 20060701
  Serious: Yes (Hospitalization)
  Sender: FDA-Public Use
  Company Number: 200511433

PATIENT
  Age: 65 Year
  Sex: Female
  Weight: 61.2356 kg

DRUGS (3)
  1. BOTOX COSMETIC [Suspect]
     Indication: SKIN WRINKLING
     Dosage: 10 UNITS ONCE IM
     Route: 030
  2. FOSAMAX [Concomitant]
  3. SYNTHROID [Concomitant]

REACTIONS (4)
  - ABDOMINAL PAIN [None]
  - BACK PAIN [None]
  - GUILLAIN-BARRE SYNDROME [None]
  - PARALYSIS [None]
